FAERS Safety Report 4745093-7 (Version None)
Quarter: 2005Q3

REPORT INFORMATION
  Report Type: 
  Country: None (occurrence: None)
  Receive Date: 20050812
  Receipt Date: 20050803
  Transmission Date: 20060218
  Serious: Yes (Other)
  Sender: FDA-Public Use
  Company Number: 216651

PATIENT
  Age: 65 Year
  Sex: Female
  Weight: 49 kg

DRUGS (8)
  1. RITUXAN [Suspect]
     Indication: NON-HODGKIN'S LYMPHOMA
     Dosage: SEE IMAGE
     Route: 042
     Dates: start: 20050516, end: 20050521
  2. RITUXAN [Suspect]
     Indication: NON-HODGKIN'S LYMPHOMA
     Dosage: SEE IMAGE
     Route: 042
     Dates: start: 20050607, end: 20050607
  3. METHYCOBAL (MECOBALAMIN) [Concomitant]
  4. CALONAL (ACETAMINOPHEN) [Concomitant]
  5. RESTAMIN (CHLORPHENIRAMINE MALEATE) [Concomitant]
  6. CYCLOPHOSPHAMIDE [Concomitant]
  7. VINCRISTINE SULFATE [Concomitant]
  8. PREDNISONE [Concomitant]

REACTIONS (1)
  - ANAPHYLACTOID REACTION [None]
